FAERS Safety Report 18476482 (Version 2)
Quarter: 2020Q4

REPORT INFORMATION
  Report Type: Spontaneous
  Country: CH (occurrence: CH)
  Receive Date: 20201106
  Receipt Date: 20201113
  Transmission Date: 20210114
  Serious: Yes (Hospitalization, Other)
  Sender: FDA-Public Use
  Company Number: CH-GILEAD-2020-0496990

PATIENT
  Age: 72 Year
  Sex: Female
  Weight: 77.7 kg

DRUGS (10)
  1. ASPIRIN CARDIO [Concomitant]
     Active Substance: ASPIRIN
     Route: 048
  2. MABTHERA [Concomitant]
     Active Substance: RITUXIMAB
     Indication: ANAEMIA
  3. ZYDELIG [Suspect]
     Active Substance: IDELALISIB
     Indication: ANAEMIA
     Dosage: 150 MG, BID
     Route: 048
     Dates: start: 202005, end: 202010
  4. MABTHERA [Concomitant]
     Active Substance: RITUXIMAB
     Indication: CHRONIC LYMPHOCYTIC LEUKAEMIA
     Dosage: UNK
     Dates: start: 20200604
  5. PREDNISON AXAPHARM [Concomitant]
     Active Substance: PREDNISONE
     Dosage: DOSAGGIO AUMENTATO DURANTE LA DEGENZA (15 MG/DIE), POI ALLA DIMISSIONE RIPRISTINATO 5 MG/DIE
     Route: 048
  6. PRAVASTATIN MEPHA [Concomitant]
     Active Substance: PRAVASTATIN
     Route: 048
  7. PANTOPRAZOL MEPHA [Concomitant]
     Active Substance: PANTOPRAZOLE SODIUM
     Route: 048
  8. ZYDELIG [Suspect]
     Active Substance: IDELALISIB
     Indication: CHRONIC LYMPHOCYTIC LEUKAEMIA
  9. XARELTO [Concomitant]
     Active Substance: RIVAROXABAN
     Route: 048
  10. NORVASC [Concomitant]
     Active Substance: AMLODIPINE BESYLATE
     Route: 048

REACTIONS (2)
  - Acute kidney injury [Recovered/Resolved]
  - Diarrhoea [Recovered/Resolved]

NARRATIVE: CASE EVENT DATE: 20200920
